FAERS Safety Report 11969495 (Version 1)
Quarter: 2016Q1

REPORT INFORMATION
  Report Type: Spontaneous
  Country: IN (occurrence: IN)
  Receive Date: 20160128
  Receipt Date: 20160128
  Transmission Date: 20160526
  Serious: Yes (Hospitalization)
  Sender: FDA-Public Use
  Company Number: IN-WATSON-2016-01239

PATIENT
  Age: 45 Year
  Sex: Male

DRUGS (2)
  1. METRONIDAZOLE (UNKNOWN) [Suspect]
     Active Substance: METRONIDAZOLE
     Dosage: 800 MG, TID
     Route: 048
  2. METRONIDAZOLE (UNKNOWN) [Suspect]
     Active Substance: METRONIDAZOLE
     Indication: LIVER ABSCESS
     Dosage: 800 ML, TID
     Route: 042

REACTIONS (1)
  - Neurotoxicity [Recovering/Resolving]
